FAERS Safety Report 19314002 (Version 4)
Quarter: 2021Q4

REPORT INFORMATION
  Report Type: Report from Study
  Country: US (occurrence: US)
  Receive Date: 20210527
  Receipt Date: 20211102
  Transmission Date: 20220304
  Serious: Yes (Hospitalization, Other)
  Sender: FDA-Public Use
  Company Number: US-NOVARTISPH-NVSC2021US112296

PATIENT
  Age: 53 Year
  Sex: Female

DRUGS (1)
  1. ENTRESTO [Suspect]
     Active Substance: SACUBITRIL\VALSARTAN
     Indication: Product used for unknown indication
     Dosage: UNK UNK, BID
     Route: 048
     Dates: start: 202010

REACTIONS (12)
  - Intestinal obstruction [Not Recovered/Not Resolved]
  - Blood pressure systolic increased [Unknown]
  - Dysphemia [Unknown]
  - Memory impairment [Unknown]
  - Dyspnoea [Unknown]
  - Somnolence [Unknown]
  - Overweight [Unknown]
  - Coordination abnormal [Unknown]
  - Nasopharyngitis [Unknown]
  - Cough [Unknown]
  - Throat clearing [Unknown]
  - Fatigue [Unknown]

NARRATIVE: CASE EVENT DATE: 20210101
